FAERS Safety Report 6496380-6 (Version None)
Quarter: 2009Q4

REPORT INFORMATION
  Report Type: 
  Country: None (occurrence: None)
  Receive Date: 20091214
  Receipt Date: 20091130
  Transmission Date: 20100525
  Serious: Yes (Other)
  Sender: FDA-Public Use
  Company Number: PHHY2009AU53813

PATIENT
  Age: 31 Year
  Sex: Female

DRUGS (5)
  1. SYNTOCINON [Suspect]
     Dosage: 10 IU
     Route: 042
  2. SYNTOMETRINE [Suspect]
     Dosage: 500 IG
     Route: 030
  3. OXYTOCIN [Suspect]
     Route: 042
  4. OXYTOCIN [Suspect]
  5. PROSTAGLANDIN F2 ALPHA [Suspect]

REACTIONS (7)
  - CAESAREAN SECTION [None]
  - DRUG EXPOSURE DURING PREGNANCY [None]
  - NORMAL NEWBORN [None]
  - OBSTRUCTED LABOUR [None]
  - POSTPARTUM HAEMORRHAGE [None]
  - UTERINE ATONY [None]
  - UTERINE RUPTURE [None]
